FAERS Safety Report 20172688 (Version 2)
Quarter: 2021Q4

REPORT INFORMATION
  Report Type: Report from Study
  Country: IT (occurrence: IT)
  Receive Date: 20211211
  Receipt Date: 20211220
  Transmission Date: 20220303
  Serious: Yes (Other)
  Sender: FDA-Public Use
  Company Number: IT-CHIESI-2021CHF06138

PATIENT
  Age: 70 Year
  Sex: Female
  Weight: 64 kg

DRUGS (9)
  1. CANGRELOR [Suspect]
     Active Substance: CANGRELOR
     Indication: Acute coronary syndrome
     Dosage: 30 MICROGRAM/KILOGRAM, (1X)
     Route: 040
     Dates: start: 20210723, end: 20210723
  2. CANGRELOR [Suspect]
     Active Substance: CANGRELOR
     Dosage: UNK
     Route: 042
     Dates: start: 20210723, end: 20210723
  3. ASPIRIN [Concomitant]
     Active Substance: ASPIRIN
     Indication: Myocardial infarction
     Dosage: 100 MILLIGRAM, QD
     Route: 048
     Dates: start: 20210723
  4. TICAGRELOR [Concomitant]
     Active Substance: TICAGRELOR
     Indication: Myocardial infarction
     Dosage: 90 MILLIGRAM, BID
     Route: 048
     Dates: start: 20210723, end: 20210726
  5. ROSUVASTATIN [Concomitant]
     Active Substance: ROSUVASTATIN
     Indication: Myocardial infarction
     Dosage: 30 MILLIGRAM, QD
     Route: 048
     Dates: start: 20210720
  6. MICARDIS [Concomitant]
     Active Substance: TELMISARTAN
     Indication: Myocardial infarction
     Dosage: 80 MILLIGRAM, QD
     Route: 048
     Dates: start: 20210723, end: 20210724
  7. BISOPROLOL FUMARATE [Concomitant]
     Active Substance: BISOPROLOL FUMARATE
     Indication: Myocardial infarction
     Dosage: 2.5 MILLIGRAM, QD
     Route: 048
     Dates: start: 20210723, end: 20210726
  8. OMEPRAZOLE [Concomitant]
     Active Substance: OMEPRAZOLE
     Indication: Gastritis prophylaxis
     Dosage: 40 MILLIGRAM, QD
     Route: 048
     Dates: start: 20210723, end: 20210726
  9. BROMAZEPAM [Concomitant]
     Active Substance: BROMAZEPAM
     Indication: Anxiety
     Dosage: 5 DROP, BID
     Route: 048
     Dates: start: 20210723, end: 20210726

REACTIONS (1)
  - Thrombocytopenia [Recovered/Resolved]

NARRATIVE: CASE EVENT DATE: 20210724
